FAERS Safety Report 19845482 (Version 1)
Quarter: 2021Q3

REPORT INFORMATION
  Report Type: Spontaneous
  Country: PK (occurrence: PK)
  Receive Date: 20210916
  Receipt Date: 20210916
  Transmission Date: 20211014
  Serious: Yes (Other)
  Sender: FDA-Public Use
  Company Number: None

PATIENT
  Age: 17 Year
  Sex: Male
  Weight: 76 kg

DRUGS (2)
  1. ASTHMA INHALER [Concomitant]
     Active Substance: UNSPECIFIED INGREDIENT
  2. MYTEKA [Suspect]
     Active Substance: MONTELUKAST SODIUM
     Indication: ASTHMA

REACTIONS (6)
  - Self esteem decreased [None]
  - Aggression [None]
  - Mood altered [None]
  - Suicidal ideation [None]
  - Depression [None]
  - Hostility [None]

NARRATIVE: CASE EVENT DATE: 20210909
